FAERS Safety Report 25261388 (Version 3)
Quarter: 2025Q3

REPORT INFORMATION
  Report Type: Report from Study
  Country: US (occurrence: US)
  Receive Date: 20250501
  Receipt Date: 20250901
  Transmission Date: 20251021
  Serious: Yes (Other)
  Sender: ABBVIE
  Company Number: US-ABBVIE-6135080

PATIENT
  Age: 58 Year
  Sex: Female

DRUGS (3)
  1. RINVOQ [Suspect]
     Active Substance: UPADACITINIB
     Indication: Rheumatoid arthritis
     Dosage: FORM STRENGTH 15 MILLIGRAM
     Route: 048
     Dates: start: 20241001, end: 20250414
  2. RINVOQ [Suspect]
     Active Substance: UPADACITINIB
     Indication: Rheumatoid arthritis
     Dosage: FORM STRENGTH 15 MILLIGRAM
     Route: 048
     Dates: start: 20250501
  3. OZEMPIC [Suspect]
     Active Substance: SEMAGLUTIDE
     Indication: Product used for unknown indication
     Route: 065

REACTIONS (13)
  - Traumatic spinal cord compression [Unknown]
  - Blood glucose increased [Unknown]
  - Gait inability [Unknown]
  - Fall [Recovered/Resolved]
  - Joint injury [Unknown]
  - Peripheral swelling [Unknown]
  - Fall [Recovered/Resolved]
  - Weight decreased [Unknown]
  - Pancreatitis [Not Recovered/Not Resolved]
  - Hypoaesthesia [Unknown]
  - Skin abrasion [Unknown]
  - Incorrect dose administered [Unknown]
  - Fall [Unknown]

NARRATIVE: CASE EVENT DATE: 20241201
